FAERS Safety Report 17334390 (Version 1)
Quarter: 2020Q1

REPORT INFORMATION
  Report Type: Spontaneous
  Country: FR (occurrence: FR)
  Receive Date: 20200128
  Receipt Date: 20200128
  Transmission Date: 20200409
  Serious: Yes (Hospitalization)
  Sender: FDA-Public Use
  Company Number: FR-TEVA-2020-FR-1174618

PATIENT
  Age: 74 Year
  Sex: Female
  Weight: 67 kg

DRUGS (3)
  1. AVASTIN [Concomitant]
     Active Substance: BEVACIZUMAB
     Indication: OVARIAN CANCER
     Dosage: 500 MG
     Route: 041
     Dates: start: 20191021, end: 20191021
  2. CARBOPLATINE TEVA 10 MG/ML, SOLUTION POUR PERFUSION [Suspect]
     Active Substance: CARBOPLATIN
     Indication: OVARIAN CANCER
     Dosage: 300 MG
     Route: 041
     Dates: start: 20191021, end: 20191021
  3. PACLITAXEL. [Concomitant]
     Active Substance: PACLITAXEL
     Indication: OVARIAN CANCER
     Dosage: 258 MG
     Route: 042
     Dates: start: 20191021, end: 20191021

REACTIONS (5)
  - Hypotension [Recovered/Resolved]
  - Paraesthesia [Recovered/Resolved]
  - Depressed level of consciousness [Recovered/Resolved]
  - Malaise [Recovered/Resolved]
  - Hypoxia [Recovered/Resolved]

NARRATIVE: CASE EVENT DATE: 20191021
